FAERS Safety Report 13516950 (Version 1)
Quarter: 2017Q2

REPORT INFORMATION
  Report Type: Spontaneous
  Country: US (occurrence: US)
  Receive Date: 20170504
  Receipt Date: 20170504
  Transmission Date: 20170830
  Serious: No
  Sender: FDA-Public Use
  Company Number: None

PATIENT
  Age: 56 Year
  Sex: Male

DRUGS (1)
  1. REVLIMID [Suspect]
     Active Substance: LENALIDOMIDE
     Indication: PLASMA CELL MYELOMA
     Dosage: EVERY OTHER DAY ON DAYS 1-21 OF A 28  DAY CYCLE.
     Route: 048
     Dates: start: 20170406

REACTIONS (1)
  - Tongue ulceration [None]

NARRATIVE: CASE EVENT DATE: 20170502
